FAERS Safety Report 8106676-X (Version None)
Quarter: 2012Q1

REPORT INFORMATION
  Report Type: 
  Country: None (occurrence: None)
  Receive Date: 20120130
  Receipt Date: 20120116
  Transmission Date: 20120608
  Serious: Yes (Death, Hospitalization, Other)
  Sender: FDA-Public Use
  Company Number: 2009AL002026

PATIENT
  Age: 64 Year
  Sex: Male
  Weight: 74.3899 kg

DRUGS (26)
  1. DIGOXIN [Suspect]
     Indication: ATRIAL FIBRILLATION
     Dosage: 125 MCG, QD, PO
     Route: 048
     Dates: start: 20080221, end: 20080305
  2. COUMADIN [Concomitant]
  3. BISACODYL [Concomitant]
  4. FORMOTEROL FUMARATE [Concomitant]
  5. CARDIZEM [Concomitant]
  6. VITAMIN E [Concomitant]
  7. CARVEDILOL [Concomitant]
  8. DILTIAZEM HCL [Concomitant]
  9. VERAPAMIL [Concomitant]
  10. AZITHROMYCIN [Concomitant]
  11. AMIODARONE HCL [Concomitant]
  12. FORADIL [Concomitant]
  13. PAREDNISONE [Concomitant]
  14. OXYCODONE HCL [Concomitant]
  15. DOCUSATE SODIUM [Concomitant]
  16. PROMETHAZINE [Concomitant]
  17. CRESTOR [Concomitant]
  18. PREDNISONE [Concomitant]
  19. ALBUTEROL [Concomitant]
  20. VITAMIN E [Concomitant]
  21. ALPRAZOLAM [Concomitant]
  22. LEVAQUIN [Concomitant]
  23. FLUROSIMIDE [Concomitant]
  24. APAP TAB [Concomitant]
  25. SPIRIVA [Concomitant]
  26. FUROSEMIDE [Concomitant]

REACTIONS (11)
  - HYPERTENSIVE HEART DISEASE [None]
  - TOXICITY TO VARIOUS AGENTS [None]
  - ANHEDONIA [None]
  - PAIN [None]
  - MYOCARDIAL ISCHAEMIA [None]
  - ATRIAL FIBRILLATION [None]
  - ECONOMIC PROBLEM [None]
  - MENTAL DISORDER [None]
  - MULTIPLE INJURIES [None]
  - TACHYCARDIA [None]
  - OEDEMA [None]
